FAERS Safety Report 6316941-4 (Version None)
Quarter: 2009Q3

REPORT INFORMATION
  Report Type: 
  Country: None (occurrence: None)
  Receive Date: 20090820
  Receipt Date: 20090814
  Transmission Date: 20100115
  Serious: Yes (Other)
  Sender: FDA-Public Use
  Company Number: PHEH2009US09412

PATIENT
  Sex: Female
  Weight: 125 kg

DRUGS (4)
  1. BENAZEPRIL HYDROCHLORIDE,HYDROCHLOROTHIAZIDE [Suspect]
     Indication: HYPERTENSION
     Dosage: 20 MG/12.5 MG, QD
  2. REBIF                                   /NET/ [Suspect]
     Indication: MULTIPLE SCLEROSIS
     Dosage: 44 UG, QW3
     Route: 058
     Dates: start: 20030303, end: 20090219
  3. SYNTHROID [Concomitant]
     Indication: THYROID HORMONE REPLACEMENT THERAPY
     Dosage: 137 MCG, QD
  4. ESTRADIOL [Concomitant]
     Indication: HORMONE REPLACEMENT THERAPY
     Dosage: 0.5 MG, QD

REACTIONS (10)
  - ARTHRALGIA [None]
  - CHILLS [None]
  - DIABETES MELLITUS [None]
  - INJECTION SITE ERYTHEMA [None]
  - INJECTION SITE PAIN [None]
  - INJECTION SITE REACTION [None]
  - MULTIPLE SCLEROSIS [None]
  - MUSCULOSKELETAL PAIN [None]
  - VISION BLURRED [None]
  - WEIGHT DECREASED [None]
